FAERS Safety Report 21486457 (Version 3)
Quarter: 2023Q1

REPORT INFORMATION
  Report Type: Spontaneous
  Country: US (occurrence: US)
  Receive Date: 20221020
  Receipt Date: 20230103
  Transmission Date: 20230418
  Serious: No
  Sender: FDA-Public Use
  Company Number: US-BRISTOL-MYERS SQUIBB COMPANY-2022-124128

PATIENT
  Age: 68 Year
  Sex: Female

DRUGS (18)
  1. REVLIMID [Suspect]
     Active Substance: LENALIDOMIDE
     Indication: Plasma cell myeloma
     Route: 048
     Dates: start: 20200103
  2. ELIQUIS [Concomitant]
     Active Substance: APIXABAN
     Indication: Product used for unknown indication
     Route: 048
  3. GABAPENTIN [Concomitant]
     Active Substance: GABAPENTIN
     Indication: Product used for unknown indication
     Route: 048
     Dates: start: 20190625
  4. HYDROXYZINE HYDROCHLORIDE [Concomitant]
     Active Substance: HYDROXYZINE HYDROCHLORIDE
     Indication: Product used for unknown indication
     Route: 048
     Dates: start: 20200515
  5. AMLODIPINE BESYLATE [Concomitant]
     Active Substance: AMLODIPINE BESYLATE
     Indication: Product used for unknown indication
     Route: 048
     Dates: start: 20191021
  6. PEPCID [Concomitant]
     Active Substance: FAMOTIDINE
     Indication: Product used for unknown indication
     Route: 048
     Dates: start: 20220628
  7. claritin 10 MG Tablet [Concomitant]
     Indication: Product used for unknown indication
     Route: 048
     Dates: start: 20200213
  8. cyanocobalamin 1000mcg/ml [Concomitant]
     Indication: Product used for unknown indication
     Dates: start: 20221121
  9. Synthroid 137 MCG Tablet [Concomitant]
     Indication: Product used for unknown indication
     Route: 048
  10. Dronedarone HCI 400 MG Tablet [Concomitant]
     Indication: Product used for unknown indication
     Route: 048
  11. Estradiol Valerate 20 MG/ML Oil [Concomitant]
     Indication: Product used for unknown indication
     Route: 030
     Dates: start: 20210621
  12. DEXAMETHASONE [Concomitant]
     Active Substance: DEXAMETHASONE
     Indication: Product used for unknown indication
     Route: 048
  13. Klor-Con M20 20 MEQ Tablet Extended Release [Concomitant]
     Indication: Product used for unknown indication
     Route: 048
     Dates: start: 20190823
  14. VALACYCLOVIR HYDROCHLORIDE [Concomitant]
     Active Substance: VALACYCLOVIR HYDROCHLORIDE
     Indication: Product used for unknown indication
     Route: 048
     Dates: start: 20221121
  15. PANTOPRAZOLE SODIUM [Concomitant]
     Active Substance: PANTOPRAZOLE SODIUM
     Indication: Product used for unknown indication
     Route: 048
  16. FLUoxetine HCI 10 MG Capsule [Concomitant]
     Indication: Product used for unknown indication
     Route: 048
     Dates: start: 20170905
  17. VITAMIN D3 [Concomitant]
     Active Substance: CHOLECALCIFEROL
     Indication: Product used for unknown indication
     Route: 048
  18. Lomotil 2.5-0.025 MG Tablet [Concomitant]
     Indication: Product used for unknown indication
     Dosage: CONTINUE LOMOTIL 2.5-0.025 MG TABLET, SIG: I TABLET AS NEEDED ORALLY FOUR TIMES A DAY START DATE: 04
     Route: 048
     Dates: start: 20180403

REACTIONS (2)
  - Skin discolouration [Unknown]
  - Pain in extremity [Unknown]

NARRATIVE: CASE EVENT DATE: 20221019
